FAERS Safety Report 10188113 (Version 1)
Quarter: 2014Q2

REPORT INFORMATION
  Report Type: Spontaneous
  Country: US (occurrence: US)
  Receive Date: 20140522
  Receipt Date: 20140522
  Transmission Date: 20141212
  Serious: No
  Sender: FDA-Public Use
  Company Number: US-PFIZER INC-2014139933

PATIENT
  Age: 12 Year
  Sex: 0

DRUGS (1)
  1. QUILLIVANT XR [Suspect]
     Dosage: 4 ML, DAILY

REACTIONS (1)
  - Rash [Unknown]
